FAERS Safety Report 11982154 (Version 2)
Quarter: 2016Q1

REPORT INFORMATION
  Report Type: Spontaneous
  Country: US (occurrence: US)
  Receive Date: 20160201
  Receipt Date: 20160329
  Transmission Date: 20160526
  Serious: Yes (Other)
  Sender: FDA-Public Use
  Company Number: US-BEH-2016058404

PATIENT
  Sex: Female
  Weight: 117 kg

DRUGS (27)
  1. ACETAMINOPHEN. [Concomitant]
     Active Substance: ACETAMINOPHEN
  2. EPIPEN [Concomitant]
     Active Substance: EPINEPHRINE
  3. COZAAR [Concomitant]
     Active Substance: LOSARTAN POTASSIUM
  4. TRAMADOL. [Concomitant]
     Active Substance: TRAMADOL
  5. DALIRESP [Concomitant]
     Active Substance: ROFLUMILAST
  6. GABAPENTIN. [Concomitant]
     Active Substance: GABAPENTIN
  7. GUAIFENESIN. [Concomitant]
     Active Substance: GUAIFENESIN
  8. HIZENTRA [Suspect]
     Active Substance: HUMAN IMMUNOGLOBULIN G
     Route: 058
  9. SPIRIVA [Concomitant]
     Active Substance: TIOTROPIUM BROMIDE MONOHYDRATE
  10. HIZENTRA [Suspect]
     Active Substance: HUMAN IMMUNOGLOBULIN G
     Route: 058
  11. DIPHENHYDRAMINE. [Concomitant]
     Active Substance: DIPHENHYDRAMINE
  12. FLONASE [Concomitant]
     Active Substance: FLUTICASONE PROPIONATE
  13. ALBUTEROL. [Concomitant]
     Active Substance: ALBUTEROL
  14. LANTUS [Concomitant]
     Active Substance: INSULIN GLARGINE
  15. HIZENTRA [Suspect]
     Active Substance: HUMAN IMMUNOGLOBULIN G
     Indication: IMMUNODEFICIENCY COMMON VARIABLE
     Route: 058
  16. METFORMIN [Concomitant]
     Active Substance: METFORMIN HYDROCHLORIDE
  17. HYDROCODONE [Concomitant]
     Active Substance: HYDROCODONE
  18. ZOLOFT [Concomitant]
     Active Substance: SERTRALINE HYDROCHLORIDE
  19. SERTRALINE [Concomitant]
     Active Substance: SERTRALINE HYDROCHLORIDE
  20. HIZENTRA [Suspect]
     Active Substance: HUMAN IMMUNOGLOBULIN G
     Route: 058
     Dates: start: 20141107
  21. LIDOCAINE. [Concomitant]
     Active Substance: LIDOCAINE
  22. LIPITOR [Concomitant]
     Active Substance: ATORVASTATIN CALCIUM
  23. ALEVE [Concomitant]
     Active Substance: NAPROXEN SODIUM
  24. HUMULIN NOS [Concomitant]
     Active Substance: INSULIN HUMAN
  25. BACTROBAN [Concomitant]
     Active Substance: MUPIROCIN\MUPIROCIN CALCIUM
  26. SINGULAIR [Concomitant]
     Active Substance: MONTELUKAST SODIUM
  27. VENTOLIN [Concomitant]
     Active Substance: ALBUTEROL SULFATE

REACTIONS (1)
  - Gastric infection [Unknown]
